FAERS Safety Report 23992863 (Version 2)
Quarter: 2024Q2

REPORT INFORMATION
  Report Type: Report from Study
  Country: US (occurrence: US)
  Receive Date: 20240620
  Receipt Date: 20240627
  Transmission Date: 20240716
  Serious: No
  Sender: FDA-Public Use
  Company Number: US-BRISTOL-MYERS SQUIBB COMPANY-2024-099355

PATIENT
  Age: 94 Year
  Sex: Female

DRUGS (3)
  1. ELIQUIS [Suspect]
     Active Substance: APIXABAN
     Indication: Cardiac disorder
     Route: 048
  2. CARVEDILOL [Concomitant]
     Active Substance: CARVEDILOL
     Indication: Product used for unknown indication
  3. LISINOPRIL [Concomitant]
     Active Substance: LISINOPRIL
     Indication: Product used for unknown indication

REACTIONS (10)
  - Peripheral swelling [Unknown]
  - Pain [Unknown]
  - Pruritus [Recovered/Resolved]
  - Body height decreased [Unknown]
  - Dysstasia [Unknown]
  - Weight fluctuation [Unknown]
  - Dysarthria [Unknown]
  - Hypoacusis [Unknown]
  - Arthralgia [Unknown]
  - Joint swelling [Unknown]
